FAERS Safety Report 18043588 (Version 1)
Quarter: 2020Q3

REPORT INFORMATION
  Report Type: Spontaneous
  Country: US (occurrence: US)
  Receive Date: 20200717
  Receipt Date: 20200717
  Transmission Date: 20201103
  Serious: Yes (Other)
  Sender: FDA-Public Use
  Company Number: None

PATIENT
  Age: 36 Year
  Sex: Male
  Weight: 57.6 kg

DRUGS (1)
  1. METHYLPREDNISOLONE. [Suspect]
     Active Substance: METHYLPREDNISOLONE
     Indication: ASTHMA
     Dosage: ?          QUANTITY:21 TABLET(S);OTHER FREQUENCY:4 TIMES A DAY;?
     Route: 048
     Dates: start: 20200717, end: 20200717

REACTIONS (1)
  - Adverse event [None]

NARRATIVE: CASE EVENT DATE: 20200717
